FAERS Safety Report 8302190-7 (Version None)
Quarter: 2012Q2

REPORT INFORMATION
  Report Type: 
  Country: None (occurrence: None)
  Receive Date: 20120420
  Receipt Date: 20120417
  Transmission Date: 20120825
  Serious: Yes (Hospitalization)
  Sender: FDA-Public Use
  Company Number: BR-US-EMD SERONO, INC.-7126898

PATIENT
  Sex: Female

DRUGS (1)
  1. REBIF [Suspect]
     Indication: SECONDARY PROGRESSIVE MULTIPLE SCLEROSIS
     Dates: start: 20101017

REACTIONS (7)
  - HYPERTENSION [None]
  - GAIT DISTURBANCE [None]
  - NERVOUSNESS [None]
  - MUSCULAR WEAKNESS [None]
  - FALL [None]
  - UPPER LIMB FRACTURE [None]
  - OFF LABEL USE [None]
